FAERS Safety Report 8617049-5 (Version None)
Quarter: 2012Q3

REPORT INFORMATION
  Report Type: 
  Country: None (occurrence: None)
  Receive Date: 20120823
  Receipt Date: 20120815
  Transmission Date: 20120928
  Serious: No
  Sender: FDA-Public Use
  Company Number: US-009507513-1207USA001274

PATIENT

DRUGS (4)
  1. SINGULAIR [Suspect]
     Indication: WHEEZING
  2. SINGULAIR [Suspect]
     Indication: COUGH
  3. QVAR 40 [Concomitant]
     Indication: WHEEZING
     Dosage: UNK
     Route: 048
     Dates: start: 20120110
  4. SINGULAIR [Suspect]
     Indication: ASTHMA
     Dosage: 5 MG, QD
     Route: 048
     Dates: start: 20120203, end: 20120620

REACTIONS (2)
  - MUSCLE TWITCHING [None]
  - FACIAL SPASM [None]
